FAERS Safety Report 15625515 (Version 1)
Quarter: 2018Q4

REPORT INFORMATION
  Report Type: Spontaneous
  Country: CA (occurrence: CA)
  Receive Date: 20181116
  Receipt Date: 20181116
  Transmission Date: 20190205
  Serious: Yes (Other)
  Sender: FDA-Public Use
  Company Number: CA-ROCHE-2216299

PATIENT
  Sex: Female

DRUGS (1)
  1. ACTEMRA [Suspect]
     Active Substance: TOCILIZUMAB
     Indication: RHEUMATOID ARTHRITIS
     Dosage: LAST DOSE: 13/NOV/2018.
     Route: 065

REACTIONS (4)
  - Diabetes mellitus [Unknown]
  - Drug effect decreased [Unknown]
  - Skin cancer [Unknown]
  - Hypertension [Unknown]
